FAERS Safety Report 16740398 (Version 1)
Quarter: 2019Q3

REPORT INFORMATION
  Report Type: Spontaneous
  Country: US (occurrence: US)
  Receive Date: 20190826
  Receipt Date: 20190826
  Transmission Date: 20191005
  Serious: No
  Sender: FDA-Public Use
  Company Number: US-PFIZER INC-2019361701

PATIENT
  Age: 64 Year
  Sex: Female
  Weight: 86.17 kg

DRUGS (5)
  1. LYRICA [Suspect]
     Active Substance: PREGABALIN
     Indication: HYPOAESTHESIA
     Dosage: 50 MG, 1X/DAY [AT BEDTIME]
     Route: 048
     Dates: start: 201904
  2. LYRICA [Suspect]
     Active Substance: PREGABALIN
     Indication: SCIATICA
  3. LYRICA [Suspect]
     Active Substance: PREGABALIN
     Indication: BACK PAIN
     Dosage: 50 MG, 2X/DAY
     Route: 048
     Dates: start: 201904
  4. TRAMADOL. [Concomitant]
     Active Substance: TRAMADOL
     Indication: HYPOAESTHESIA
     Dosage: 200 MG, 1X/DAY
  5. PERCOCET [Concomitant]
     Active Substance: ACETAMINOPHEN\OXYCODONE HYDROCHLORIDE
     Indication: HYPOAESTHESIA
     Dosage: UNK

REACTIONS (1)
  - Therapeutic product effect incomplete [Unknown]
